FAERS Safety Report 15077176 (Version 4)
Quarter: 2018Q3

REPORT INFORMATION
  Report Type: Report from Study
  Country: US (occurrence: US)
  Receive Date: 20180627
  Receipt Date: 20180822
  Transmission Date: 20181010
  Serious: Yes (Disabling, Other)
  Sender: FDA-Public Use
  Company Number: US-SA-2017SA069481

PATIENT
  Age: 35 Year
  Sex: Male

DRUGS (4)
  1. TYLENOL [Concomitant]
     Active Substance: ACETAMINOPHEN
  2. ALGLUCOSIDASE ALFA [Suspect]
     Active Substance: ALGLUCOSIDASE ALFA
     Indication: GLYCOGEN STORAGE DISEASE TYPE II
     Dosage: DOSE?2400 FREQUENCY?Q2
     Route: 041
     Dates: start: 20170329
  3. LISINOPRIL. [Suspect]
     Active Substance: LISINOPRIL
  4. BENADRYL [Concomitant]
     Active Substance: DIPHENHYDRAMINE HYDROCHLORIDE

REACTIONS (24)
  - Mobility decreased [Unknown]
  - Muscular weakness [Unknown]
  - Constipation [Unknown]
  - Abdominal pain upper [Unknown]
  - Haemorrhage [Not Recovered/Not Resolved]
  - Malaise [Unknown]
  - Poor venous access [Unknown]
  - Dyspnoea [Unknown]
  - Myalgia [Unknown]
  - Pain in extremity [Not Recovered/Not Resolved]
  - Gait disturbance [Not Recovered/Not Resolved]
  - Pain in jaw [Recovered/Resolved]
  - Troponin increased [Recovered/Resolved]
  - Feeling hot [Unknown]
  - Chest pain [Unknown]
  - Pyrexia [Recovering/Resolving]
  - Hypersensitivity [Unknown]
  - Nausea [Unknown]
  - Dizziness [Recovering/Resolving]
  - Blood pressure increased [Not Recovered/Not Resolved]
  - Loss of consciousness [Unknown]
  - Animal bite [Not Recovered/Not Resolved]
  - Sleep disorder [Unknown]
  - Musculoskeletal discomfort [Unknown]

NARRATIVE: CASE EVENT DATE: 2017
